FAERS Safety Report 7328878-2 (Version None)
Quarter: 2011Q1

REPORT INFORMATION
  Report Type: 
  Country: None (occurrence: None)
  Receive Date: 20110303
  Receipt Date: 20110225
  Transmission Date: 20110831
  Serious: Yes (Hospitalization)
  Sender: FDA-Public Use
  Company Number: DK-ROCHE-762439

PATIENT
  Sex: Male

DRUGS (2)
  1. RIVOTRIL [Suspect]
     Dosage: ROUTE WAS NOT PROVIDED.
     Route: 065
  2. DIAZEPAM [Concomitant]

REACTIONS (3)
  - JOINT DISLOCATION [None]
  - EPILEPSY [None]
  - WITHDRAWAL SYNDROME [None]
